FAERS Safety Report 4719799-X (Version None)
Quarter: 2005Q3

REPORT INFORMATION
  Report Type: 
  Country: None (occurrence: None)
  Receive Date: 20050721
  Receipt Date: 20040806
  Transmission Date: 20060218
  Serious: Yes (Hospitalization, Other)
  Sender: FDA-Public Use
  Company Number: US-GLAXOSMITHKLINE-A0533140A

PATIENT
  Age: 49 Year
  Sex: Female

DRUGS (21)
  1. AVANDIA [Suspect]
     Indication: DRUG USE FOR UNKNOWN INDICATION
     Dosage: 4MG TWICE PER DAY
     Route: 048
     Dates: start: 20020101, end: 20030112
  2. GLYBURIDE [Concomitant]
     Dosage: 10MG TWICE PER DAY
     Route: 048
  3. METFORMIN [Concomitant]
     Dosage: 500MG TWICE PER DAY
     Dates: start: 20000314
  4. ALLEGRA [Concomitant]
     Dosage: 60MG TWICE PER DAY
  5. ZANTAC [Concomitant]
     Dates: start: 20040313
  6. AMOXIL [Concomitant]
     Indication: SINUSITIS
     Dosage: 500MG THREE TIMES PER DAY
  7. INSULIN [Concomitant]
  8. TYLENOL W/ CODEINE NO. 3 [Concomitant]
  9. FLEXERIL [Concomitant]
  10. ROBAXIN [Concomitant]
  11. LASIX [Concomitant]
  12. ARTHROTEC [Concomitant]
     Indication: DRUG USE FOR UNKNOWN INDICATION
     Dosage: 50MG THREE TIMES PER DAY
     Route: 048
  13. MAGNESIUM OXIDE [Concomitant]
     Indication: DRUG USE FOR UNKNOWN INDICATION
     Dosage: 400MG THREE TIMES PER DAY
     Route: 048
  14. NEURONTIN [Concomitant]
     Indication: DRUG USE FOR UNKNOWN INDICATION
     Dosage: 100MG THREE TIMES PER DAY
     Route: 048
  15. BEXTRA [Concomitant]
     Indication: DRUG USE FOR UNKNOWN INDICATION
     Dosage: 10MG PER DAY
     Route: 048
  16. ESTRADIOL [Concomitant]
     Indication: DRUG USE FOR UNKNOWN INDICATION
     Dosage: 2MG PER DAY
     Route: 048
  17. SEROQUEL [Concomitant]
     Indication: DRUG USE FOR UNKNOWN INDICATION
     Dosage: 1000MG PER DAY
     Route: 048
  18. PROZAC [Concomitant]
     Indication: DRUG USE FOR UNKNOWN INDICATION
     Dosage: 40MG PER DAY
     Route: 048
  19. POTASSIUM CHLORIDE [Concomitant]
     Indication: DRUG USE FOR UNKNOWN INDICATION
     Dosage: 10MEQ PER DAY
  20. MONOPRIL [Concomitant]
     Indication: DRUG USE FOR UNKNOWN INDICATION
     Dosage: 20MG PER DAY
     Route: 048
  21. DEMADEX [Concomitant]
     Dosage: 40MG PER DAY
     Route: 048

REACTIONS (1)
  - CARDIAC FAILURE CONGESTIVE [None]
